FAERS Safety Report 9056334 (Version 2)
Quarter: 2015Q1

REPORT INFORMATION
  Report Type: Report from Study
  Country: US (occurrence: US)
  Receive Date: 20130204
  Receipt Date: 20150324
  Transmission Date: 20150721
  Serious: Yes (Death)
  Sender: FDA-Public Use
  Company Number: US-ROCHE-1186073

PATIENT
  Age: 53 Year
  Sex: Male

DRUGS (14)
  1. EMEND [Concomitant]
     Active Substance: APREPITANT
     Route: 048
  2. PEPCID [Concomitant]
     Active Substance: FAMOTIDINE
     Dosage: 15-20MIN PRIOR TO TAXOL INFUSE OVER 20MIN
     Route: 042
  3. AVASTIN [Suspect]
     Active Substance: BEVACIZUMAB
     Indication: LUNG NEOPLASM MALIGNANT
     Dosage: IN 100ML NACL 0.9%
     Route: 042
     Dates: start: 20120130
  4. AVASTIN [Suspect]
     Active Substance: BEVACIZUMAB
     Indication: METASTASES TO LIVER
     Dosage: IN 100ML NACL 0.9%
     Route: 042
     Dates: start: 20120214
  5. CLARITIN [Concomitant]
     Active Substance: LORATADINE
     Dosage: EMPTY STOMACH
     Route: 048
  6. PARAPLATIN [Concomitant]
     Active Substance: CARBOPLATIN
  7. EMEND [Concomitant]
     Active Substance: APREPITANT
     Route: 048
  8. PARAPLATIN [Concomitant]
     Active Substance: CARBOPLATIN
     Dosage: IN 250ML NACL 0.9%
     Route: 042
  9. ATIVAN [Concomitant]
     Active Substance: LORAZEPAM
     Route: 042
  10. KYTRIL [Concomitant]
     Active Substance: GRANISETRON HYDROCHLORIDE
     Route: 042
  11. DEXAMETHASONE. [Concomitant]
     Active Substance: DEXAMETHASONE
     Dosage: IN 50ML NACL 0.9% PRIOR TO CHEMOTHERAPY OVER 20MIN
     Route: 042
  12. DIPHENHYDRAMINE [Concomitant]
     Active Substance: DIPHENHYDRAMINE
     Dosage: IN 50ML NACL 0.9% PRIOR TO CHEMOTHERAPY OVER 20MIN
     Route: 042
  13. TAXOL [Concomitant]
     Active Substance: PACLITAXEL
     Route: 042
  14. SODIUM CHLORIDE. [Concomitant]
     Active Substance: SODIUM CHLORIDE
     Dosage: IN 100ML
     Route: 065

REACTIONS (1)
  - Death [Fatal]

NARRATIVE: CASE EVENT DATE: 20120301
